FAERS Safety Report 10693544 (Version 2)
Quarter: 2015Q1

REPORT INFORMATION
  Report Type: Spontaneous
  Country: JP (occurrence: JP)
  Receive Date: 20150106
  Receipt Date: 20150119
  Transmission Date: 20150721
  Serious: Yes (Other)
  Sender: FDA-Public Use
  Company Number: PHHY2014JP169756

PATIENT
  Sex: Female
  Weight: 62 kg

DRUGS (6)
  1. IRINOTECAN [Suspect]
     Active Substance: IRINOTECAN
     Indication: PANCREATIC CARCINOMA METASTATIC
     Dosage: 180 MG/M2, DAY 1
     Route: 065
  2. 5-FLUOROURACIL [Suspect]
     Active Substance: FLUOROURACIL
     Indication: PANCREATIC CARCINOMA METASTATIC
     Dosage: 400 MG/M2, ON DAY 1
     Route: 042
  3. OXALIPLATIN. [Suspect]
     Active Substance: OXALIPLATIN
     Indication: PANCREATIC CARCINOMA METASTATIC
     Dosage: 85 MG/M2, DAY 1
     Route: 065
  4. IRINOTECAN [Suspect]
     Active Substance: IRINOTECAN
     Dosage: 150 MG/M2, UNK
     Route: 065
  5. 5-FLUOROURACIL [Suspect]
     Active Substance: FLUOROURACIL
     Dosage: 2400 MG/M2, DAY 1-3
     Route: 041
  6. LEVOFOLINATE [Suspect]
     Active Substance: LEVOLEUCOVORIN CALCIUM
     Indication: PANCREATIC CARCINOMA METASTATIC
     Dosage: 200 MG/M2, DAY 1
     Route: 065

REACTIONS (8)
  - Nausea [Recovering/Resolving]
  - Tremor [Recovered/Resolved]
  - Disorientation [Unknown]
  - Hyperammonaemic encephalopathy [Recovering/Resolving]
  - Altered state of consciousness [Recovered/Resolved]
  - Vomiting [Recovering/Resolving]
  - Hepatic failure [Recovering/Resolving]
  - Ammonia increased [Recovering/Resolving]
